FAERS Safety Report 10253579 (Version 2)
Quarter: 2014Q2

REPORT INFORMATION
  Report Type: Spontaneous
  Country: CA (occurrence: CA)
  Receive Date: 20140623
  Receipt Date: 20140625
  Transmission Date: 20141212
  Serious: Yes (Other)
  Sender: FDA-Public Use
  Company Number: CHPA2014CA008242

PATIENT
  Age: 38 Year
  Sex: Female

DRUGS (6)
  1. NEOCITRAN DAYTIME TOTAL SYMPTOM RELIEF [Suspect]
     Indication: NASOPHARYNGITIS
     Dosage: UNK, TID
     Route: 048
     Dates: start: 201404, end: 201404
  2. NEOCITRAN DAYTIME TOTAL SYMPTOM RELIEF [Suspect]
     Indication: INFLUENZA
  3. NEOCITRAN DAYTIME TOTAL SYMPTOM RELIEF [Suspect]
     Indication: SINUS CONGESTION
  4. NEOCITRAN DAYTIME TOTAL SYMPTOM RELIEF [Suspect]
     Indication: COUGH
  5. NEOCITRAN DAYTIME TOTAL SYMPTOM RELIEF [Suspect]
     Indication: OROPHARYNGEAL PAIN
  6. NEOCITRAN DAYTIME TOTAL SYMPTOM RELIEF [Suspect]
     Indication: PYREXIA

REACTIONS (5)
  - Swelling [Recovered/Resolved]
  - Swelling face [Recovered/Resolved]
  - Eye swelling [Recovered/Resolved]
  - Somnolence [Unknown]
  - Expired product administered [Unknown]
